FAERS Safety Report 4684637-0 (Version None)
Quarter: 2005Q2

REPORT INFORMATION
  Report Type: 
  Country: None (occurrence: None)
  Receive Date: 20050603
  Receipt Date: 20050523
  Transmission Date: 20051028
  Serious: Yes (Hospitalization)
  Sender: FDA-Public Use
  Company Number: S05-USA-02019-01

PATIENT
  Age: 90 Year
  Sex: Female

DRUGS (4)
  1. LEXAPRO [Suspect]
     Indication: DEPRESSION
     Dosage: 20 MG QD PO
     Route: 048
     Dates: start: 20050330, end: 20050418
  2. LEXAPRO [Suspect]
     Indication: DEPRESSION
     Dosage: 10 MG QD PO
     Route: 048
     Dates: start: 20050325, end: 20050329
  3. REMERON [Suspect]
     Indication: DEPRESSION
     Dates: start: 19950101, end: 20050324
  4. BLOOD PRESSURE MEDICATIONS (NOS) [Concomitant]

REACTIONS (8)
  - AMNESIA [None]
  - BLOOD PRESSURE SYSTOLIC INCREASED [None]
  - CEREBROVASCULAR ACCIDENT [None]
  - CONFUSIONAL STATE [None]
  - DRY MOUTH [None]
  - FEELING HOT [None]
  - NERVOUSNESS [None]
  - SYNCOPE [None]
